FAERS Safety Report 5124928-2 (Version None)
Quarter: 2006Q4

REPORT INFORMATION
  Report Type: 
  Country: None (occurrence: None)
  Receive Date: 20061006
  Receipt Date: 20060927
  Transmission Date: 20070319
  Serious: Yes (Hospitalization)
  Sender: FDA-Public Use
  Company Number: B0440383A

PATIENT
  Age: 45 Year
  Sex: Male

DRUGS (2)
  1. EPIVIR-HBV [Suspect]
     Indication: HEPATITIS B
     Dosage: 100 MG/ PER DAY/ ORAL
     Route: 048
     Dates: start: 20060913, end: 20060926
  2. ANTIDEPRESSANT [Concomitant]

REACTIONS (4)
  - ALANINE AMINOTRANSFERASE INCREASED [None]
  - ASPARTATE AMINOTRANSFERASE INCREASED [None]
  - MALAISE [None]
  - PLATELET COUNT DECREASED [None]
